FAERS Safety Report 5531592-7 (Version None)
Quarter: 2007Q4

REPORT INFORMATION
  Report Type: 
  Country: None (occurrence: None)
  Receive Date: 20071203
  Receipt Date: 20071128
  Transmission Date: 20080405
  Serious: Yes (Hospitalization)
  Sender: FDA-Public Use
  Company Number: PHHO2007US14985

PATIENT
  Age: 70 Year
  Sex: Male

DRUGS (13)
  1. VITAMIN CAP [Concomitant]
  2. TRAMADOL HCL [Concomitant]
     Dosage: 50 MG, UNK
  3. ASPIRIN [Concomitant]
     Dosage: 81 MG, UNK
  4. MELOXICAM [Concomitant]
     Dosage: 7.5 MG, UNK
  5. TERAZOSIN HCL [Concomitant]
     Dosage: 2 MG, UNK
  6. SIMVASTATIN [Concomitant]
     Dosage: 80 MG, UNK
  7. AMLODIPINE [Concomitant]
     Dosage: 5 MG, UNK
  8. LOTREL [Suspect]
     Indication: HYPERTENSION
     Dosage: LEVEL 1
     Route: 048
     Dates: start: 20040413, end: 20040512
  9. LOTREL [Suspect]
     Dosage: LEVEL 2
     Route: 048
     Dates: start: 20040513, end: 20070410
  10. LOTREL [Suspect]
     Dosage: UNK, LEVEL 3
     Route: 048
     Dates: start: 20060411, end: 20070822
  11. OMEPRAZOLE [Concomitant]
     Dosage: 20 MG, UNK
  12. OMEGA 3 FISH OIL [Concomitant]
  13. GLUCOSAMINE [Concomitant]

REACTIONS (13)
  - ABDOMINAL PAIN UPPER [None]
  - BILE DUCT STENT INSERTION [None]
  - BILIARY SPHINCTEROTOMY [None]
  - BLOOD AMYLASE INCREASED [None]
  - BLOOD CREATININE INCREASED [None]
  - CHOLECYSTECTOMY [None]
  - CHOLELITHIASIS [None]
  - LIPASE INCREASED [None]
  - NAUSEA [None]
  - PANCREATITIS [None]
  - RENAL FAILURE ACUTE [None]
  - VOMITING [None]
  - WEIGHT DECREASED [None]
